FAERS Safety Report 19155358 (Version 2)
Quarter: 2021Q3

REPORT INFORMATION
  Report Type: Report from Study
  Country: HN (occurrence: HN)
  Receive Date: 20210419
  Receipt Date: 20210803
  Transmission Date: 20211014
  Serious: Yes (Other)
  Sender: FDA-Public Use
  Company Number: NVSC2021HN083048

PATIENT
  Sex: Female
  Weight: 140 kg

DRUGS (7)
  1. VYMADA [Suspect]
     Active Substance: SACUBITRIL\VALSARTAN
     Dosage: 200 MG,1 OF 200 MG,EVERY 12 HRS/TWICE DAILY
     Route: 065
  2. SPIRONOLACTONE. [Concomitant]
     Active Substance: SPIRONOLACTONE
     Indication: CARDIAC FAILURE
     Dosage: 25 MG,QD, 2 OF 25 MG,SEP OR OCT
     Route: 048
     Dates: start: 2020
  3. RITMONORM [Concomitant]
     Active Substance: PROPAFENONE HYDROCHLORIDE
     Indication: ARRHYTHMIA
     Dosage: 150 MG, QD, SEP OR OCT
     Route: 048
     Dates: start: 2020
  4. VYMADA [Suspect]
     Active Substance: SACUBITRIL\VALSARTAN
     Indication: HYPERTENSION
     Dosage: 50 MG
     Route: 065
     Dates: start: 202010, end: 202011
  5. ATORVASTATIN [Suspect]
     Active Substance: ATORVASTATIN
     Indication: BLOOD CHOLESTEROL
     Dosage: 40 MG, 1 OF 40 MG, AT NIGHT
     Route: 048
     Dates: start: 2020
  6. DIGOXIN. [Concomitant]
     Active Substance: DIGOXIN
     Indication: ARRHYTHMIA
     Dosage: 0.25 MG, SEP OR OCT 2020
     Route: 048
     Dates: start: 2020
  7. VYMADA [Suspect]
     Active Substance: SACUBITRIL\VALSARTAN
     Dosage: 100 MG
     Route: 065
     Dates: start: 202011

REACTIONS (4)
  - Fall [Unknown]
  - Hip fracture [Unknown]
  - Gait disturbance [Unknown]
  - Product use in unapproved indication [Unknown]
